FAERS Safety Report 4714130-8 (Version None)
Quarter: 2005Q3

REPORT INFORMATION
  Report Type: 
  Country: None (occurrence: None)
  Receive Date: 20050714
  Receipt Date: 20050714
  Transmission Date: 20060218
  Serious: No
  Sender: FDA-Public Use
  Company Number: None

PATIENT
  Age: 42 Year
  Sex: Female

DRUGS (9)
  1. AUGMENTIN '125' [Suspect]
     Dosage: 875/125 BID FOR 10 DAYS
     Dates: start: 20050209, end: 20050219
  2. ALUPENT [Concomitant]
  3. PENICILLIN [Concomitant]
  4. IBUPROFEN [Concomitant]
  5. AFRIN [Concomitant]
  6. MUCINEX [Concomitant]
  7. NASONEX [Concomitant]
  8. GUAFENISIN [Concomitant]
  9. ALLEGRO [Concomitant]

REACTIONS (5)
  - HEPATIC TRAUMA [None]
  - JAUNDICE [None]
  - MALAISE [None]
  - NAUSEA [None]
  - RASH [None]
